FAERS Safety Report 19065816 (Version 4)
Quarter: 2021Q3

REPORT INFORMATION
  Report Type: Report from Study
  Country: US (occurrence: US)
  Receive Date: 20210327
  Receipt Date: 20210920
  Transmission Date: 20211014
  Serious: Yes (Hospitalization, Other)
  Sender: FDA-Public Use
  Company Number: US-SHIRE-US202023922

PATIENT
  Age: 74 Year
  Sex: Female

DRUGS (20)
  1. TEDUGLUTIDE [Suspect]
     Active Substance: TEDUGLUTIDE
     Indication: SHORT-BOWEL SYNDROME
     Dosage: 3.2 MILLIGRAM, 1X/DAY:QD
     Route: 058
     Dates: start: 20190816
  2. TEDUGLUTIDE [Suspect]
     Active Substance: TEDUGLUTIDE
     Dosage: 1.62 MILLIGRAM, QOD
     Route: 058
     Dates: start: 20210312
  3. TEDUGLUTIDE [Suspect]
     Active Substance: TEDUGLUTIDE
     Dosage: 1.62 MILLIGRAM, QOD
     Route: 058
     Dates: start: 20210312
  4. TEDUGLUTIDE [Suspect]
     Active Substance: TEDUGLUTIDE
     Dosage: 1.62 MILLIGRAM, QD
     Route: 058
     Dates: start: 20190823
  5. TEDUGLUTIDE [Suspect]
     Active Substance: TEDUGLUTIDE
     Dosage: 3.2 MILLIGRAM, 1X/DAY:QD
     Route: 042
     Dates: start: 20200211
  6. TEDUGLUTIDE [Suspect]
     Active Substance: TEDUGLUTIDE
     Dosage: 1.62 MILLIGRAM, QOD
     Route: 058
     Dates: start: 20210312
  7. TEDUGLUTIDE [Suspect]
     Active Substance: TEDUGLUTIDE
     Dosage: 3.2 MILLIGRAM, 1X/DAY:QD
     Route: 042
     Dates: start: 20200211
  8. TEDUGLUTIDE [Suspect]
     Active Substance: TEDUGLUTIDE
     Dosage: 1.62 MILLIGRAM, QD
     Route: 058
     Dates: start: 20190823
  9. TEDUGLUTIDE [Suspect]
     Active Substance: TEDUGLUTIDE
     Indication: SHORT-BOWEL SYNDROME
     Dosage: 3.2 MILLIGRAM, 1X/DAY:QD
     Route: 058
     Dates: start: 20190816
  10. TEDUGLUTIDE [Suspect]
     Active Substance: TEDUGLUTIDE
     Dosage: 3.2 MILLIGRAM, 1X/DAY:QD
     Route: 050
     Dates: start: 20190823
  11. TEDUGLUTIDE [Suspect]
     Active Substance: TEDUGLUTIDE
     Dosage: 3.2 MILLIGRAM, 1X/DAY:QD
     Route: 042
     Dates: start: 20200211
  12. TEDUGLUTIDE [Suspect]
     Active Substance: TEDUGLUTIDE
     Dosage: 1.62 MILLIGRAM, QD
     Route: 058
     Dates: start: 20190823
  13. TEDUGLUTIDE [Suspect]
     Active Substance: TEDUGLUTIDE
     Dosage: 3.2 MILLIGRAM, 1X/DAY:QD
     Route: 050
     Dates: start: 20190823
  14. TEDUGLUTIDE [Suspect]
     Active Substance: TEDUGLUTIDE
     Dosage: 1.62 MILLIGRAM, QD
     Route: 058
     Dates: start: 20190823
  15. TEDUGLUTIDE [Suspect]
     Active Substance: TEDUGLUTIDE
     Indication: SHORT-BOWEL SYNDROME
     Dosage: 3.2 MILLIGRAM, 1X/DAY:QD
     Route: 058
     Dates: start: 20190816
  16. TEDUGLUTIDE [Suspect]
     Active Substance: TEDUGLUTIDE
     Indication: SHORT-BOWEL SYNDROME
     Dosage: 3.2 MILLIGRAM, 1X/DAY:QD
     Route: 058
     Dates: start: 20190816
  17. TEDUGLUTIDE [Suspect]
     Active Substance: TEDUGLUTIDE
     Dosage: 3.2 MILLIGRAM, 1X/DAY:QD
     Route: 050
     Dates: start: 20190823
  18. TEDUGLUTIDE [Suspect]
     Active Substance: TEDUGLUTIDE
     Dosage: 3.2 MILLIGRAM, 1X/DAY:QD
     Route: 050
     Dates: start: 20190823
  19. TEDUGLUTIDE [Suspect]
     Active Substance: TEDUGLUTIDE
     Dosage: 3.2 MILLIGRAM, 1X/DAY:QD
     Route: 042
     Dates: start: 20200211
  20. TEDUGLUTIDE [Suspect]
     Active Substance: TEDUGLUTIDE
     Dosage: 1.62 MILLIGRAM, QOD
     Route: 058
     Dates: start: 20210312

REACTIONS (11)
  - Feeling abnormal [Unknown]
  - Contusion [Unknown]
  - Hospitalisation [Unknown]
  - Hypohidrosis [Unknown]
  - Stoma site haemorrhage [Unknown]
  - Product container issue [Unknown]
  - Nausea [Unknown]
  - Hepatitis B [Unknown]
  - Injection site bruising [Unknown]
  - Liver function test increased [Unknown]
  - Dizziness [Unknown]

NARRATIVE: CASE EVENT DATE: 20210910
